FAERS Safety Report 17020148 (Version 2)
Quarter: 2019Q4

REPORT INFORMATION
  Report Type: Spontaneous
  Country: US (occurrence: US)
  Receive Date: 20191112
  Receipt Date: 20191212
  Transmission Date: 20200122
  Serious: No
  Sender: FDA-Public Use
  Company Number: US-MYLANLABS-2019M1103722

PATIENT
  Age: 60 Year
  Sex: Female
  Weight: 128 kg

DRUGS (2)
  1. FULPHILA [Suspect]
     Active Substance: PEGFILGRASTIM-JMDB
     Indication: CHEMOTHERAPY
     Dosage: UNK UNK, Q2W
     Route: 058
     Dates: start: 2019
  2. FULPHILA [Suspect]
     Active Substance: PEGFILGRASTIM-JMDB
     Indication: BREAST CANCER FEMALE

REACTIONS (2)
  - Product dose omission [Not Recovered/Not Resolved]
  - Syringe issue [Unknown]

NARRATIVE: CASE EVENT DATE: 20191029
